FAERS Safety Report 14519347 (Version 1)
Quarter: 2018Q1

REPORT INFORMATION
  Report Type: Spontaneous
  Country: US (occurrence: US)
  Receive Date: 20180212
  Receipt Date: 20180212
  Transmission Date: 20180509
  Serious: No
  Sender: FDA-Public Use
  Company Number: US-PFIZER INC-2018062257

PATIENT
  Age: 70 Year
  Sex: Female

DRUGS (1)
  1. EFFEXOR [Suspect]
     Active Substance: VENLAFAXINE HYDROCHLORIDE
     Dosage: UNK

REACTIONS (8)
  - Vitamin B complex deficiency [Unknown]
  - Paraesthesia [Unknown]
  - Dizziness [Unknown]
  - Oedema [Recovering/Resolving]
  - Treatment noncompliance [Unknown]
  - Pain in extremity [Not Recovered/Not Resolved]
  - Burning sensation [Unknown]
  - Skin discolouration [Recovering/Resolving]
